FAERS Safety Report 4897703-1 (Version None)
Quarter: 2006Q1

REPORT INFORMATION
  Report Type: 
  Country: None (occurrence: None)
  Receive Date: 20060201
  Receipt Date: 20051212
  Transmission Date: 20060701
  Serious: Yes (Death, Hospitalization)
  Sender: FDA-Public Use
  Company Number: DE-AMGEN-UK159515

PATIENT
  Sex: Male
  Weight: 80 kg

DRUGS (19)
  1. KEPIVANCE [Suspect]
     Indication: PROPHYLAXIS
     Route: 042
     Dates: start: 20051116, end: 20051126
  2. CYCLOPHOSPHAMIDE [Concomitant]
     Route: 065
     Dates: start: 20051119, end: 20051120
  3. PIPERACILLIN / TAZOBACTAM [Concomitant]
     Route: 042
     Dates: start: 20051122, end: 20051215
  4. CEFTAZIDIME [Concomitant]
     Route: 042
     Dates: start: 20051122, end: 20051215
  5. BUTAZOLIDIN [Concomitant]
     Route: 042
     Dates: start: 20051122, end: 20051215
  6. CIPROBAY [Concomitant]
     Route: 048
     Dates: start: 20051117, end: 20051122
  7. PENICILLIN [Concomitant]
     Route: 048
     Dates: start: 20051117, end: 20051122
  8. CLONT [Concomitant]
     Route: 048
     Dates: start: 20051117
  9. MESNA [Concomitant]
     Route: 065
  10. VFEND [Concomitant]
     Route: 048
     Dates: start: 20051121
  11. AMPHO-MORONAL [Concomitant]
     Route: 048
     Dates: start: 20051117
  12. CYMEVENE [Concomitant]
     Route: 042
     Dates: start: 20051118, end: 20051122
  13. VALTREX [Concomitant]
     Route: 048
     Dates: start: 20051123
  14. METHOTREXATE [Concomitant]
     Route: 042
     Dates: start: 20051125
  15. CYCLOSPORINE [Concomitant]
     Route: 042
     Dates: start: 20051123
  16. PENTACARINAT [Concomitant]
     Route: 055
     Dates: start: 20051118
  17. GAMMAGARD [Concomitant]
     Route: 042
     Dates: start: 20051123
  18. ZYLORIC [Concomitant]
     Route: 048
     Dates: start: 20051119
  19. PANTOZOL [Concomitant]
     Route: 048
     Dates: start: 20051117

REACTIONS (7)
  - BLISTER [None]
  - ERYTHEMA [None]
  - HYPOCALCAEMIA [None]
  - INFECTION [None]
  - MUCOSAL INFLAMMATION [None]
  - SKIN EXFOLIATION [None]
  - TRANSPLANT FAILURE [None]
